FAERS Safety Report 24771636 (Version 1)
Quarter: 2024Q4

REPORT INFORMATION
  Report Type: Spontaneous
  Country: CA (occurrence: CA)
  Receive Date: 20241224
  Receipt Date: 20241224
  Transmission Date: 20250115
  Serious: Yes (Hospitalization, Other)
  Sender: SANDOZ
  Company Number: CA-SANDOZ-SDZ2024CA063630

PATIENT
  Age: 62 Year
  Sex: Male

DRUGS (7)
  1. AZACITIDINE [Suspect]
     Active Substance: AZACITIDINE
     Indication: Acute myeloid leukaemia
     Dosage: UNK
     Route: 048
  2. CYTARABINE [Suspect]
     Active Substance: CYTARABINE
     Indication: Acute myeloid leukaemia
     Dosage: 100 MG/M2
     Route: 037
  3. CYTARABINE [Suspect]
     Active Substance: CYTARABINE
     Dosage: 50 MG/M2
     Route: 065
  4. DASATINIB [Suspect]
     Active Substance: DASATINIB
     Indication: Acute myeloid leukaemia
     Dosage: 70 MG, BID (1 EVERY .5 DAYS)
     Route: 048
  5. HYDROXYUREA [Suspect]
     Active Substance: HYDROXYUREA
     Indication: Acute myeloid leukaemia
     Dosage: UNK
     Route: 065
  6. VANCOMYCIN HYDROCHLORIDE [Suspect]
     Active Substance: VANCOMYCIN HYDROCHLORIDE
     Indication: Enterococcal infection
     Dosage: UNK
     Route: 065
  7. DAUNORUBICIN HYDROCHLORIDE [Concomitant]
     Active Substance: DAUNORUBICIN HYDROCHLORIDE
     Indication: Acute myeloid leukaemia
     Dosage: 60.0 MG/M2
     Route: 065

REACTIONS (12)
  - Febrile neutropenia [Recovering/Resolving]
  - Hypertransaminasaemia [Recovering/Resolving]
  - Ulcer [Recovering/Resolving]
  - Mobility decreased [Recovering/Resolving]
  - Nephropathy toxic [Recovering/Resolving]
  - Physical deconditioning [Recovering/Resolving]
  - Rash morbilliform [Recovering/Resolving]
  - Enterococcal infection [Recovered/Resolved]
  - Face oedema [Recovering/Resolving]
  - Renal impairment [Recovering/Resolving]
  - Acute kidney injury [Recovered/Resolved]
  - Off label use [Recovered/Resolved]
